FAERS Safety Report 25385756 (Version 1)
Quarter: 2025Q2

REPORT INFORMATION
  Report Type: Report from Study
  Country: JP (occurrence: JP)
  Receive Date: 20250602
  Receipt Date: 20250602
  Transmission Date: 20250717
  Serious: Yes (Other)
  Sender: SHIONOGI
  Company Number: JP-shionogi-202500005459

PATIENT
  Age: 41 Year
  Sex: Female
  Weight: 30.7 kg

DRUGS (26)
  1. CEFIDEROCOL [Suspect]
     Active Substance: CEFIDEROCOL
     Indication: Meningitis
     Route: 041
     Dates: start: 20240807, end: 20240830
  2. CEFIDEROCOL [Suspect]
     Active Substance: CEFIDEROCOL
     Indication: Shunt infection
  3. VANCOMYCIN [Suspect]
     Active Substance: VANCOMYCIN
     Indication: Meningitis
     Route: 065
     Dates: start: 20240813, end: 20240822
  4. VANCOMYCIN [Suspect]
     Active Substance: VANCOMYCIN
     Indication: Shunt infection
  5. VANCOMYCIN [Suspect]
     Active Substance: VANCOMYCIN
     Indication: Pneumonia
  6. CEFEPIME [Concomitant]
     Active Substance: CEFEPIME HYDROCHLORIDE
     Indication: Meningitis
     Dosage: MORE THAN 2 WEEKS BEFORE THE START OF FETROJA
     Route: 065
     Dates: end: 20240806
  7. CEFEPIME [Concomitant]
     Active Substance: CEFEPIME HYDROCHLORIDE
     Indication: Shunt infection
  8. CIPROFLOXACIN [Concomitant]
     Active Substance: CIPROFLOXACIN
     Indication: Meningitis
     Dosage: MORE THAN 2 WEEKS BEFORE THE START OF FETROJA
     Route: 065
     Dates: end: 20240807
  9. CIPROFLOXACIN [Concomitant]
     Active Substance: CIPROFLOXACIN
     Indication: Shunt infection
  10. CALCIUM CHLORIDE\POTASSIUM CHLORIDE\SODIUM ACETATE\SODIUM CHLORIDE [Concomitant]
     Active Substance: CALCIUM CHLORIDE\POTASSIUM CHLORIDE\SODIUM ACETATE\SODIUM CHLORIDE
     Indication: Meningitis
     Route: 065
     Dates: start: 20240820, end: 20240827
  11. CALCIUM CHLORIDE\POTASSIUM CHLORIDE\SODIUM ACETATE\SODIUM CHLORIDE [Concomitant]
     Active Substance: CALCIUM CHLORIDE\POTASSIUM CHLORIDE\SODIUM ACETATE\SODIUM CHLORIDE
     Indication: Shunt infection
  12. OLMESARTAN MEDOXOMIL [Concomitant]
     Active Substance: OLMESARTAN MEDOXOMIL
     Indication: Product used for unknown indication
     Route: 048
  13. NIFEDIPINE [Concomitant]
     Active Substance: NIFEDIPINE
     Indication: Product used for unknown indication
     Route: 048
     Dates: end: 20240820
  14. VONOPRAZAN FUMARATE [Concomitant]
     Active Substance: VONOPRAZAN FUMARATE
     Indication: Prophylaxis
     Route: 048
  15. DANTRIUM [Concomitant]
     Active Substance: DANTROLENE SODIUM
     Indication: Product used for unknown indication
     Route: 048
  16. VALPROATE SODIUM [Concomitant]
     Active Substance: VALPROATE SODIUM
     Indication: Product used for unknown indication
     Route: 048
     Dates: start: 20240819
  17. DEPAKENE [Concomitant]
     Active Substance: VALPROIC ACID
     Indication: Product used for unknown indication
     Route: 048
     Dates: end: 20240816
  18. VIMPAT [Concomitant]
     Active Substance: LACOSAMIDE
     Indication: Product used for unknown indication
     Route: 048
  19. ACETAMINOPHEN [Concomitant]
     Active Substance: ACETAMINOPHEN
     Indication: Meningitis
     Route: 048
     Dates: start: 20240810, end: 20240810
  20. ACETAMINOPHEN [Concomitant]
     Active Substance: ACETAMINOPHEN
     Indication: Shunt infection
  21. AMITIZA [Concomitant]
     Active Substance: LUBIPROSTONE
     Indication: Constipation
     Route: 048
     Dates: start: 20240823
  22. NIFEDIPINE [Concomitant]
     Active Substance: NIFEDIPINE
     Indication: Product used for unknown indication
     Route: 048
     Dates: start: 20240821
  23. LIDOCAINE [Concomitant]
     Active Substance: LIDOCAINE
     Indication: Product used for unknown indication
     Route: 061
     Dates: start: 20240826, end: 20240826
  24. GLYCERIN [Concomitant]
     Active Substance: GLYCERIN
     Indication: Constipation
     Route: 054
     Dates: start: 20240811, end: 20240822
  25. DEPAKENE [Concomitant]
     Active Substance: VALPROIC ACID
     Indication: Product used for unknown indication
     Route: 048
     Dates: start: 20240816, end: 20240819
  26. DEPAKENE [Concomitant]
     Active Substance: VALPROIC ACID
     Indication: Seizure
     Route: 048

REACTIONS (4)
  - Eosinophil count increased [Recovering/Resolving]
  - Seizure [Recovered/Resolved]
  - Pneumonia [Recovering/Resolving]
  - Constipation [Unknown]

NARRATIVE: CASE EVENT DATE: 20240810
